FAERS Safety Report 8395977-6 (Version None)
Quarter: 2012Q2

REPORT INFORMATION
  Report Type: 
  Country: None (occurrence: None)
  Receive Date: 20120530
  Receipt Date: 20120521
  Transmission Date: 20120825
  Serious: Yes (Other)
  Sender: FDA-Public Use
  Company Number: FR-ROCHE-1063200

PATIENT
  Sex: Female
  Weight: 48 kg

DRUGS (16)
  1. VITAMIN D [Concomitant]
     Dates: start: 20110711
  2. GAVISCON (FRANCE) [Concomitant]
     Dosage: 1
     Dates: start: 20110711
  3. POLYETHYLENE GLYCOL [Concomitant]
     Dates: start: 20110711
  4. ASPIRIN [Concomitant]
     Dates: start: 20110711
  5. LAMOTRGINE [Concomitant]
     Dates: start: 20110711
  6. VISMODEGIB [Suspect]
     Indication: BASAL CELL CARCINOMA
     Dosage: LAST DOSE PRIOR TO SAE 22/APR/2012, TEMPORARILY INTERRUPTED
     Route: 048
     Dates: start: 20120127
  7. EFUDEX [Concomitant]
     Dates: start: 20120227
  8. CALCIUM [Concomitant]
     Dates: start: 20110711
  9. TRAMADOL HCL [Concomitant]
     Dates: start: 20110711
  10. PERINDOPRIL ERBUMINE [Concomitant]
     Dates: start: 20110711
  11. STABLON [Concomitant]
     Dates: start: 20110711
  12. PLASTENAN [Concomitant]
     Dates: start: 20120221
  13. ACETAMINOPHEN [Concomitant]
     Dates: start: 20110711
  14. AMLODIPINE BESYLATE [Concomitant]
     Dates: start: 20110711
  15. OXAZEPAM [Concomitant]
     Dates: start: 20110711
  16. ASPIRIN [Concomitant]
     Dates: start: 20110711

REACTIONS (1)
  - GAMMA-GLUTAMYLTRANSFERASE INCREASED [None]
